FAERS Safety Report 4851180-5 (Version None)
Quarter: 2005Q4

REPORT INFORMATION
  Report Type: 
  Country: None (occurrence: None)
  Receive Date: 20051208
  Receipt Date: 20051122
  Transmission Date: 20060501
  Serious: Yes (Other)
  Sender: FDA-Public Use
  Company Number: 12837

PATIENT
  Age: 75 Year
  Sex: Male

DRUGS (6)
  1. CISPLATIN [Suspect]
     Indication: PANCREATIC CARCINOMA
     Dosage: 40 MG/M2 PER_CYCLE
  2. FLUOROURACIL [Suspect]
     Indication: PANCREATIC CARCINOMA
     Dosage: 400 MG/M2
  3. FLUOROURACIL [Suspect]
     Indication: PANCREATIC CARCINOMA
     Dosage: 1200 MG/M2 IV
     Route: 042
  4. IRINOTECAN HCL [Suspect]
     Indication: PANCREATIC CARCINOMA
     Dosage: 80 MG/M2 PER_CYCLE
  5. LEUCOVORIN CALCIUM [Suspect]
     Indication: PANCREATIC CARCINOMA
     Dosage: 300 MG/M2 PER_CYCLE
  6. GEMCITABINE [Suspect]
     Indication: PANCREATIC CARCINOMA
     Dosage: 500 MG/M2 PER_CYCLE

REACTIONS (2)
  - DRUG INEFFECTIVE [None]
  - HEPATIC LESION [None]
